FAERS Safety Report 19708157 (Version 1)
Quarter: 2021Q3

REPORT INFORMATION
  Report Type: Spontaneous
  Country: US (occurrence: US)
  Receive Date: 20210817
  Receipt Date: 20210817
  Transmission Date: 20211014
  Serious: No
  Sender: FDA-Public Use
  Company Number: US-BAYER-2021-192264

PATIENT
  Sex: Female

DRUGS (1)
  1. MIRENA [Suspect]
     Active Substance: LEVONORGESTREL
     Indication: CONTRACEPTION
     Dosage: 20  ?G PER DAY CONTINUOUSLY
     Route: 015
     Dates: start: 20190411

REACTIONS (5)
  - Dyspareunia [None]
  - Menstruation delayed [None]
  - Urinary tract infection [None]
  - Urine output increased [None]
  - Dysuria [None]

NARRATIVE: CASE EVENT DATE: 2021
